FAERS Safety Report 8069643 (Version 3)
Quarter: 2013Q3

REPORT INFORMATION
  Report Type: Spontaneous
  Country: FR (occurrence: FR)
  Receive Date: 20110804
  Receipt Date: 20130705
  Transmission Date: 20140515
  Serious: Yes (Hospitalization, Other)
  Sender: FDA-Public Use
  Company Number: FR-JNJFOC-20110800514

PATIENT
  Age: 0 Day
  Sex: Female
  Weight: 2.18 kg

DRUGS (8)
  1. REMICADE [Suspect]
     Indication: FOETAL EXPOSURE DURING PREGNANCY
     Route: 064
  2. REMICADE [Suspect]
     Indication: FOETAL EXPOSURE DURING PREGNANCY
     Route: 064
     Dates: end: 20110404
  3. ATARAX [Suspect]
     Indication: PRURITUS
     Dosage: FROM WEEK 32  TO WEEK 34.5 OF AMENORRHEA
     Route: 065
  4. POLARAMIN [Suspect]
     Indication: PRURITUS
     Dosage: FROM WEEK 32 TO WEEK 34.5 OF AMENORRHEA
     Route: 065
  5. OROKEN [Suspect]
     Indication: ESCHERICHIA INFECTION
     Dosage: AT WEEK 34.
     Route: 065
  6. FLAGYL [Suspect]
     Indication: ESCHERICHIA INFECTION
     Dosage: AT WEEK 34
     Route: 065
  7. CLOMID [Suspect]
     Indication: PRODUCT USED FOR UNKNOWN INDICATION
     Route: 065
  8. TRACTOCILE (ATOSIBAN) [Suspect]
     Indication: THREATENED LABOUR
     Dosage: AT WEEK 33 OF AMENORRHEA
     Route: 065

REACTIONS (6)
  - Neutropenia [Recovered/Resolved]
  - Neonatal respiratory distress syndrome [Recovered/Resolved]
  - Omphalitis [Unknown]
  - Premature baby [Recovered/Resolved]
  - Enterobacter infection [Not Recovered/Not Resolved]
  - Bacterial diarrhoea [Recovered/Resolved]
